FAERS Safety Report 6711647-1 (Version None)
Quarter: 2010Q2

REPORT INFORMATION
  Report Type: 
  Country: None (occurrence: None)
  Receive Date: 20100505
  Receipt Date: 20100504
  Transmission Date: 20101027
  Serious: Yes (Other)
  Sender: FDA-Public Use
  Company Number: AE-ROXANE LABORATORIES, INC.-2010-RO-00519RO

PATIENT
  Age: 68 Year
  Sex: Male

DRUGS (3)
  1. LIDOCAINE [Suspect]
     Indication: NERVE BLOCK
  2. BUPIVACAINE HCL [Suspect]
     Indication: NERVE BLOCK
  3. HYALURONIDASE [Suspect]
     Indication: NERVE BLOCK

REACTIONS (1)
  - ANAESTHESIA [None]
